FAERS Safety Report 13581952 (Version 4)
Quarter: 2017Q2

REPORT INFORMATION
  Report Type: Report from Study
  Country: None (occurrence: DE)
  Receive Date: 20170525
  Receipt Date: 20170609
  Transmission Date: 20170830
  Serious: Yes (Hospitalization, Other)
  Sender: FDA-Public Use
  Company Number: DE-ABBVIE-17P-062-1984637-00

PATIENT
  Age: 50 Year
  Sex: Male
  Weight: 79 kg

DRUGS (3)
  1. EXVIERA [Suspect]
     Active Substance: DASABUVIR
     Indication: CHRONIC HEPATITIS C
     Route: 048
     Dates: start: 20150311, end: 20150602
  2. VIEKIRAX [Suspect]
     Active Substance: OMBITASVIR\PARITAPREVIR\RITONAVIR
     Indication: CHRONIC HEPATITIS C
     Route: 048
     Dates: start: 20150311, end: 20150602
  3. RAMIPRIL. [Concomitant]
     Active Substance: RAMIPRIL
     Indication: PRODUCT USED FOR UNKNOWN INDICATION
     Dates: start: 20141101

REACTIONS (22)
  - Cognitive disorder [Unknown]
  - Dysphonia psychogenic [Unknown]
  - Anxiety [Unknown]
  - Meningism [Unknown]
  - Social avoidant behaviour [Unknown]
  - Disturbance in attention [Unknown]
  - Communication disorder [Unknown]
  - Fatigue [Unknown]
  - Depression [Unknown]
  - Headache [Unknown]
  - Memory impairment [Unknown]
  - Anxiety disorder [Unknown]
  - Increased appetite [Unknown]
  - Irritability [Unknown]
  - HIV infection [Not Recovered/Not Resolved]
  - Distractibility [Unknown]
  - Executive dysfunction [Unknown]
  - Encephalitis [Recovering/Resolving]
  - Depressed mood [Unknown]
  - Weight bearing difficulty [Unknown]
  - Adjustment disorder [Unknown]
  - Infection [Unknown]

NARRATIVE: CASE EVENT DATE: 20160521
